FAERS Safety Report 22798633 (Version 6)
Quarter: 2024Q2

REPORT INFORMATION
  Report Type: Spontaneous
  Country: PK (occurrence: PK)
  Receive Date: 20230808
  Receipt Date: 20240604
  Transmission Date: 20240715
  Serious: Yes (Other)
  Sender: FDA-Public Use
  Company Number: PK-PFIZER INC-PV202300134182

PATIENT
  Age: 73 Year
  Sex: Female

DRUGS (2)
  1. ENBREL [Suspect]
     Active Substance: BENZYL ALCOHOL\ETANERCEPT
     Indication: Psoriatic arthropathy
     Dosage: 50 MG, WEEKLY
     Route: 058
     Dates: start: 20230327
  2. ENBREL [Suspect]
     Active Substance: BENZYL ALCOHOL\ETANERCEPT
     Dosage: 50 MG, TWICE WEEKLY FOR 3 MONTHS
     Route: 058

REACTIONS (6)
  - Hypothyroidism [Unknown]
  - Injection site phlebitis [Recovered/Resolved]
  - Myalgia [Unknown]
  - Off label use [Unknown]
  - Pain [Unknown]
  - Hypertension [Unknown]
